FAERS Safety Report 5375640-6 (Version None)
Quarter: 2007Q2

REPORT INFORMATION
  Report Type: 
  Country: None (occurrence: None)
  Receive Date: 20070628
  Receipt Date: 20070613
  Transmission Date: 20071010
  Serious: Yes (Hospitalization, Other)
  Sender: FDA-Public Use
  Company Number: PAR_01611_2007

PATIENT
  Age: 27 Year
  Sex: Female

DRUGS (3)
  1. IBUPROFEN [Suspect]
     Dosage: ORAL
     Route: 048
  2. CALAN [Suspect]
     Dosage: (120 MG 15X; ORAL)
     Route: 048
  3. FIORICET [Suspect]
     Dosage: ORAL
     Route: 048

REACTIONS (9)
  - BLOOD GLUCOSE INCREASED [None]
  - BLOOD PH DECREASED [None]
  - BLOOD PRESSURE DECREASED [None]
  - NODAL RHYTHM [None]
  - OVERDOSE [None]
  - PCO2 DECREASED [None]
  - PO2 DECREASED [None]
  - PULMONARY OEDEMA [None]
  - PYREXIA [None]
